FAERS Safety Report 21022534 (Version 1)
Quarter: 2022Q2

REPORT INFORMATION
  Report Type: Other
  Country: None (occurrence: SY)
  Receive Date: 20220629
  Receipt Date: 20220629
  Transmission Date: 20220720
  Serious: Yes (Hospitalization, Other)
  Sender: FDA-Public Use
  Company Number: SY-Eywa Pharma Inc.-2130391

PATIENT
  Age: 26 Year
  Sex: Female

DRUGS (12)
  1. LABETALOL HYDROCHLORIDE [Suspect]
     Active Substance: LABETALOL HYDROCHLORIDE
     Indication: Hypertension
     Route: 042
  2. PREDNISOLONE [Interacting]
     Active Substance: PREDNISOLONE
     Route: 065
  3. CARBAMAZEPINE [Interacting]
     Active Substance: CARBAMAZEPINE
     Route: 065
  4. ATORVASTATIN CALCIUM [Interacting]
     Active Substance: ATORVASTATIN CALCIUM
     Route: 065
  5. RIVAROXABAN [Interacting]
     Active Substance: RIVAROXABAN
     Route: 065
  6. ERYTHROPOIETIN [Interacting]
     Active Substance: ERYTHROPOIETIN
     Route: 065
  7. METHYLDOPA [Interacting]
     Active Substance: METHYLDOPA
     Route: 065
  8. CARVEDILOL [Interacting]
     Active Substance: CARVEDILOL
     Route: 065
  9. AMLODIPINE, VALSARTAN AND HYDROCHLOROTHIAZIDE [Interacting]
     Active Substance: AMLODIPINE BESYLATE\HYDROCHLOROTHIAZIDE\VALSARTAN
     Route: 065
  10. FUROSEMIDE [Interacting]
     Active Substance: FUROSEMIDE
     Route: 042
  11. DILTIAZEM [Interacting]
     Active Substance: DILTIAZEM
     Route: 065
  12. MYCOPHENOLATE MOFETIL [Concomitant]
     Active Substance: MYCOPHENOLATE MOFETIL
     Route: 065

REACTIONS (3)
  - Hypertension [Recovered/Resolved]
  - Posterior reversible encephalopathy syndrome [Unknown]
  - Drug interaction [Unknown]
